FAERS Safety Report 9203317 (Version 1)
Quarter: 2013Q2

REPORT INFORMATION
  Report Type: Spontaneous
  Country: US (occurrence: US)
  Receive Date: 20130402
  Receipt Date: 20130402
  Transmission Date: 20140414
  Serious: Yes (Hospitalization, Other)
  Sender: FDA-Public Use
  Company Number: US-PURDUE-USA-2013-0100360

PATIENT
  Sex: Female

DRUGS (5)
  1. OXYCONTIN (NDA 22-272) [Suspect]
     Indication: INTERVERTEBRAL DISC PROTRUSION
     Dosage: 40 MG, TID
  2. OXYCONTIN (NDA 22-272) [Suspect]
     Indication: SCOLIOSIS
  3. OXYCONTIN (NDA 22-272) [Suspect]
     Indication: FRACTURED COCCYX
  4. ANTIDEPRESSANTS [Concomitant]
     Indication: PRODUCT USED FOR UNKNOWN INDICATION
  5. PERCOCET                           /00867901/ [Concomitant]
     Indication: PRODUCT USED FOR UNKNOWN INDICATION

REACTIONS (5)
  - Gastroenteritis viral [Unknown]
  - Mental disorder [Unknown]
  - Vomiting [Unknown]
  - Diarrhoea [Unknown]
  - Convulsion [Unknown]
